FAERS Safety Report 6840272-7 (Version None)
Quarter: 2010Q3

REPORT INFORMATION
  Report Type: 
  Country: None (occurrence: None)
  Receive Date: 20100714
  Receipt Date: 20100630
  Transmission Date: 20110219
  Serious: Yes (Other)
  Sender: FDA-Public Use
  Company Number: CHPA2010US11207

PATIENT
  Age: 74 Year
  Sex: Male
  Weight: 72.562 kg

DRUGS (3)
  1. PREVACID 24 HR [Suspect]
     Indication: GASTRITIS
     Dosage: 30 MG, QD
     Route: 048
     Dates: start: 20100101, end: 20100101
  2. PREVACID 24 HR [Suspect]
     Dosage: 30 MG, QD
     Route: 048
     Dates: start: 20100523, end: 20100623
  3. MYLANTA                                 /USA/ [Suspect]
     Dosage: A LITTLE, PRN
     Route: 048

REACTIONS (5)
  - CHOLECYSTECTOMY [None]
  - INTENTIONAL DRUG MISUSE [None]
  - OFF LABEL USE [None]
  - OVERDOSE [None]
  - THERAPEUTIC RESPONSE UNEXPECTED [None]
